FAERS Safety Report 5451420-8 (Version None)
Quarter: 2007Q3

REPORT INFORMATION
  Report Type: 
  Country: None (occurrence: None)
  Receive Date: 20070913
  Receipt Date: 20070906
  Transmission Date: 20080115
  Serious: Yes (Life-Threatening, Hospitalization)
  Sender: FDA-Public Use
  Company Number: B0482177A

PATIENT
  Age: 67 Year
  Sex: Female
  Weight: 77 kg

DRUGS (7)
  1. AUGMENTIN '125' [Suspect]
     Dosage: 625MG TWICE PER DAY
     Route: 048
     Dates: start: 20070719, end: 20070719
  2. AMOXICILLIN [Concomitant]
  3. PENICILLIN G [Concomitant]
  4. PREMIQUE [Concomitant]
     Indication: MENOPAUSE
     Dates: start: 19991004
  5. COVERSYL PLUS [Concomitant]
     Indication: HYPERTENSION
     Dates: start: 20060221
  6. CRESTOR [Concomitant]
     Dosage: 10MG PER DAY
     Dates: start: 20070110
  7. ROYAL JELLY [Concomitant]

REACTIONS (23)
  - ANAPHYLACTIC REACTION [None]
  - BRONCHOSPASM [None]
  - CHEST DISCOMFORT [None]
  - CIRCULATORY COLLAPSE [None]
  - DEPRESSED LEVEL OF CONSCIOUSNESS [None]
  - DERMATITIS CONTACT [None]
  - DIARRHOEA [None]
  - FACE OEDEMA [None]
  - FEELING ABNORMAL [None]
  - FEELING HOT [None]
  - HYPOTENSION [None]
  - LARYNGEAL OEDEMA [None]
  - NAUSEA [None]
  - PALMAR ERYTHEMA [None]
  - PARAESTHESIA [None]
  - PHARMACEUTICAL PRODUCT COMPLAINT [None]
  - PRURITUS GENERALISED [None]
  - PYREXIA [None]
  - RASH [None]
  - SYNCOPE [None]
  - TONGUE DISORDER [None]
  - URTICARIA [None]
  - VOMITING [None]
